FAERS Safety Report 6619334-5 (Version None)
Quarter: 2010Q1

REPORT INFORMATION
  Report Type: 
  Country: None (occurrence: None)
  Receive Date: 20100303
  Receipt Date: 20100217
  Transmission Date: 20100710
  Serious: Yes (Other)
  Sender: FDA-Public Use
  Company Number: 1000011836

PATIENT
  Age: 20 Year
  Sex: Female
  Weight: 92 kg

DRUGS (13)
  1. CITALOPRAM HYDROBROMIDE [Suspect]
     Indication: OBSESSIVE-COMPULSIVE DISORDER
     Dosage: 10 MG (10 MG, 2 IN 1 D)
  2. CLOZARIL [Suspect]
     Indication: CONSTIPATION
     Dosage: SEE IMAGE
     Dates: start: 20030401, end: 20090125
  3. CLOZARIL [Suspect]
     Indication: DYSPEPSIA
     Dosage: SEE IMAGE
     Dates: start: 20030401, end: 20090125
  4. CLOZARIL [Suspect]
     Indication: SCHIZOPHRENIA
     Dosage: SEE IMAGE
     Dates: start: 20030401, end: 20090125
  5. CLOZARIL [Suspect]
     Indication: CONSTIPATION
     Dosage: SEE IMAGE
     Dates: start: 20090126, end: 20091229
  6. CLOZARIL [Suspect]
     Indication: DYSPEPSIA
     Dosage: SEE IMAGE
     Dates: start: 20090126, end: 20091229
  7. CLOZARIL [Suspect]
     Indication: SCHIZOPHRENIA
     Dosage: SEE IMAGE
     Dates: start: 20090126, end: 20091229
  8. CLOZARIL [Suspect]
     Indication: CONSTIPATION
     Dosage: SEE IMAGE
     Dates: start: 20091230, end: 20100114
  9. CLOZARIL [Suspect]
     Indication: DYSPEPSIA
     Dosage: SEE IMAGE
     Dates: start: 20091230, end: 20100114
  10. CLOZARIL [Suspect]
     Indication: SCHIZOPHRENIA
     Dosage: SEE IMAGE
     Dates: start: 20091230, end: 20100114
  11. CLOZARIL [Suspect]
     Indication: CONSTIPATION
     Dosage: SEE IMAGE
     Dates: start: 20100115
  12. CLOZARIL [Suspect]
     Indication: DYSPEPSIA
     Dosage: SEE IMAGE
     Dates: start: 20100115
  13. CLOZARIL [Suspect]
     Indication: SCHIZOPHRENIA
     Dosage: SEE IMAGE
     Dates: start: 20100115

REACTIONS (6)
  - ANXIETY [None]
  - DRUG INTERACTION [None]
  - DRUG LEVEL INCREASED [None]
  - HYPOCHONDRIASIS [None]
  - IMPULSIVE BEHAVIOUR [None]
  - REPETITIVE SPEECH [None]
